FAERS Safety Report 19157147 (Version 1)
Quarter: 2021Q2

REPORT INFORMATION
  Report Type: Report from Study
  Country: CA (occurrence: CA)
  Receive Date: 20210420
  Receipt Date: 20210420
  Transmission Date: 20210717
  Serious: Yes (Other)
  Sender: FDA-Public Use
  Company Number: CA-JNJFOC-20210423120

PATIENT
  Age: 71 Year
  Sex: Female
  Weight: 68 kg

DRUGS (1)
  1. REMICADE [Suspect]
     Active Substance: INFLIXIMAB
     Indication: PYODERMA GANGRENOSUM
     Route: 042
     Dates: start: 20201027

REACTIONS (7)
  - Flushing [Recovered/Resolved]
  - Lethargy [Recovered/Resolved]
  - Infusion related reaction [Recovered/Resolved]
  - Chest discomfort [Not Recovered/Not Resolved]
  - Off label use [Unknown]
  - Product use in unapproved indication [Unknown]
  - Nausea [Not Recovered/Not Resolved]

NARRATIVE: CASE EVENT DATE: 20201027
